FAERS Safety Report 7305965-6 (Version None)
Quarter: 2011Q1

REPORT INFORMATION
  Report Type: 
  Country: None (occurrence: None)
  Receive Date: 20110222
  Receipt Date: 20110215
  Transmission Date: 20110831
  Serious: Yes (Hospitalization)
  Sender: FDA-Public Use
  Company Number: GB-AMGEN-GBRSP2011008936

PATIENT
  Sex: Male

DRUGS (4)
  1. BLEOMYCIN [Concomitant]
  2. ETOPOSIDE [Concomitant]
  3. NEULASTA [Suspect]
     Indication: CHEMOTHERAPY
  4. CISPLATIN [Concomitant]

REACTIONS (2)
  - FEBRILE NEUTROPENIA [None]
  - DRUG INEFFECTIVE [None]
